FAERS Safety Report 4399303-9 (Version None)
Quarter: 2004Q3

REPORT INFORMATION
  Report Type: 
  Country: None (occurrence: None)
  Receive Date: 20040712
  Receipt Date: 20040624
  Transmission Date: 20050211
  Serious: Yes (Hospitalization)
  Sender: FDA-Public Use
  Company Number: A02200402026

PATIENT
  Age: 57 Year
  Sex: Female

DRUGS (4)
  1. KERLONE [Suspect]
     Indication: HYPERTENSION
     Route: 048
     Dates: start: 20000101, end: 20040101
  2. FUCIDINE CAP [Suspect]
     Route: 048
     Dates: start: 20040315, end: 20040322
  3. ZESTORETIC ^ZENECA^ - (LISINOPRIL / HYDROCHLOROTHIAZIDE) - TABLET - 32 [Suspect]
     Indication: HYPERTENSION
     Route: 048
     Dates: start: 20000101, end: 20040101
  4. AMLOR - (AMLODIPINE BESILATE) - CAPSULE - UNIT DOSE : UNKNOWN [Suspect]
     Indication: HYPERTENSION
     Route: 048
     Dates: start: 20000101, end: 20040101

REACTIONS (10)
  - ANURIA [None]
  - DERMATITIS BULLOUS [None]
  - DERMATOSIS [None]
  - HYPOALBUMINAEMIA [None]
  - OEDEMA [None]
  - PHAEOCHROMOCYTOMA [None]
  - PSORIASIS [None]
  - RASH PUSTULAR [None]
  - RENAL FAILURE ACUTE [None]
  - TOXIC EPIDERMAL NECROLYSIS [None]
